FAERS Safety Report 4512208-5 (Version None)
Quarter: 2004Q4

REPORT INFORMATION
  Report Type: 
  Country: None (occurrence: None)
  Receive Date: 20041123
  Receipt Date: 20041112
  Transmission Date: 20050328
  Serious: Yes (Hospitalization)
  Sender: FDA-Public Use
  Company Number: 209302

PATIENT
  Age: 57 Year
  Sex: Male
  Weight: 90 kg

DRUGS (8)
  1. BEVACIZUMAB  (BEVACIZUMAB) [Suspect]
     Indication: METASTATIC RENAL CELL CARCINOMA
     Dosage: 900 MG, Q2W, INTRAVENOUS
     Route: 042
     Dates: start: 20040901, end: 20040901
  2. INTERFERON ALFA-2A(INTERFERON ALFA-2A) [Suspect]
     Indication: METASTATIC RENAL CELL CARCINOMA
     Dosage: 9 MIU, 3/WEEK, SUBCUTANEOUS
     Route: 058
     Dates: start: 20040901, end: 20040915
  3. FENTANYL CITRATE [Concomitant]
  4. KETOPROFEN [Concomitant]
  5. SPIRONOLACTON (SPIRONOLACTONE) [Concomitant]
  6. DIAZEPAM [Concomitant]
  7. KALIUM (POTASSIUM NOS) [Concomitant]
  8. CAPTOPRIL [Concomitant]

REACTIONS (10)
  - AMNESIA [None]
  - ANAEMIA [None]
  - BLOOD CREATININE INCREASED [None]
  - ENCEPHALOPATHY [None]
  - GENERAL PHYSICAL HEALTH DETERIORATION [None]
  - HYPERCALCAEMIA [None]
  - HYPERTENSION [None]
  - HYPOKALAEMIA [None]
  - METASTASES TO BONE [None]
  - PERSECUTORY DELUSION [None]
